FAERS Safety Report 8529682 (Version 3)
Quarter: 2014Q3

REPORT INFORMATION
  Report Type: Spontaneous
  Country: US (occurrence: US)
  Receive Date: 20120425
  Receipt Date: 20140827
  Transmission Date: 20150326
  Serious: Yes (Hospitalization, Other)
  Sender: FDA-Public Use
  Company Number: US-ROCHE-778644

PATIENT
  Sex: Male
  Weight: 74 kg

DRUGS (1)
  1. ACCUTANE [Suspect]
     Active Substance: ISOTRETINOIN
     Indication: ACNE
     Route: 065
     Dates: start: 19870810, end: 19910417

REACTIONS (10)
  - Crohn^s disease [Unknown]
  - Diverticulitis [Unknown]
  - Emotional distress [Unknown]
  - Intestinal haemorrhage [Unknown]
  - Rectal polyp [Unknown]
  - Colitis ulcerative [Unknown]
  - Irritable bowel syndrome [Unknown]
  - Intestinal perforation [Unknown]
  - Inflammatory bowel disease [Unknown]
  - Depression [Unknown]

NARRATIVE: CASE EVENT DATE: 1990
